FAERS Safety Report 23398780 (Version 2)
Quarter: 2024Q1

REPORT INFORMATION
  Report Type: Spontaneous
  Country: IT (occurrence: IT)
  Receive Date: 20240112
  Receipt Date: 20240305
  Transmission Date: 20240410
  Serious: Yes (Other)
  Sender: FDA-Public Use
  Company Number: IT-ROCHE-3483087

PATIENT
  Age: 53 Year
  Sex: Female

DRUGS (5)
  1. BENDAMUSTINE HYDROCHLORIDE [Suspect]
     Active Substance: BENDAMUSTINE HYDROCHLORIDE
     Indication: Follicular lymphoma
     Dosage: UNK, R-BENDA; TIME FROM LATEST BENDAMUSTINE ADMINISTRATION TO FIRST VACCINE DOSE WAS 496 DAYS.
     Route: 065
  2. RITUXIMAB [Suspect]
     Active Substance: RITUXIMAB
     Indication: Follicular lymphoma
     Dosage: UNK, R-BENDA; RTX
     Route: 065
  3. ELASOMERAN [Suspect]
     Active Substance: ELASOMERAN
     Indication: COVID-19
     Dosage: UNK, FIRST DOSE
     Route: 065
     Dates: start: 202103
  4. ELASOMERAN [Suspect]
     Active Substance: ELASOMERAN
     Dosage: UNK, A THIRD VACCINE DOSE BETWEEN DECEMBER 2021 AND JANUARY 2022
     Route: 065
  5. ELASOMERAN [Suspect]
     Active Substance: ELASOMERAN
     Dosage: UNK, A SECOND MRNA-1273 VACCINE DOSE 28 DAYS LATER
     Route: 065

REACTIONS (2)
  - Breakthrough COVID-19 [Unknown]
  - Vaccination failure [Unknown]
